FAERS Safety Report 23824752 (Version 2)
Quarter: 2024Q3

REPORT INFORMATION
  Report Type: Spontaneous
  Country: US (occurrence: US)
  Receive Date: 20240507
  Receipt Date: 20240703
  Transmission Date: 20241016
  Serious: No
  Sender: VIFOR
  Company Number: US-Vifor (International) Inc.-VIT-2024-03520

PATIENT
  Age: 55 Year
  Sex: Male
  Weight: 103.5 kg

DRUGS (4)
  1. MIRCERA [Suspect]
     Active Substance: METHOXY POLYETHYLENE GLYCOL-EPOETIN BETA
     Indication: Nephrogenic anaemia
     Dosage: DOSE NUMBER: 1 AND DOSE CATEGORY: DOSE 1.
     Route: 040
     Dates: start: 20240329, end: 20240329
  2. VENOFER [Suspect]
     Active Substance: IRON SUCROSE
     Indication: Product used for unknown indication
     Dosage: LAST KNOWN ADMINISTRATION DATE: 01-APR-2024
     Route: 042
     Dates: start: 20240321
  3. ZOFRAN [Concomitant]
     Active Substance: ONDANSETRON HYDROCHLORIDE
     Indication: Nausea
     Route: 048
  4. CALCITRIOL [Concomitant]
     Active Substance: CALCITRIOL
     Route: 048

REACTIONS (2)
  - Drug hypersensitivity [Recovered/Resolved]
  - Pruritus [Recovered/Resolved]

NARRATIVE: CASE EVENT DATE: 20240329
